FAERS Safety Report 23762155 (Version 1)
Quarter: 2024Q2

REPORT INFORMATION
  Report Type: Spontaneous
  Country: US (occurrence: None)
  Receive Date: 20240419
  Receipt Date: 20240419
  Transmission Date: 20240716
  Serious: No
  Sender: FDA-Public Use
  Company Number: None

PATIENT
  Sex: Female

DRUGS (1)
  1. TEMOZOLOMIDE [Suspect]
     Active Substance: TEMOZOLOMIDE
     Indication: Brain oedema
     Dates: start: 20231101, end: 20240413

REACTIONS (5)
  - Paralysis [None]
  - Speech disorder [None]
  - Hypersomnia [None]
  - Brain herniation [None]
  - Neurological decompensation [None]

NARRATIVE: CASE EVENT DATE: 20240413
